FAERS Safety Report 7883230-6 (Version None)
Quarter: 2011Q4

REPORT INFORMATION
  Report Type: 
  Country: None (occurrence: None)
  Receive Date: 20111031
  Receipt Date: 20111014
  Transmission Date: 20120403
  Serious: Yes (Hospitalization)
  Sender: FDA-Public Use
  Company Number: UTC-010544

PATIENT
  Age: 56 Year
  Sex: Female
  Weight: 88.18 kg

DRUGS (4)
  1. COUMADIN [Concomitant]
  2. DIURETICS [Concomitant]
  3. REMODULIN [Suspect]
     Indication: PULMONARY HYPERTENSION
     Dosage: SEE IMAGE: INTRAVENOUS
     Route: 042
     Dates: start: 20110622
  4. NEURONTIN [Concomitant]

REACTIONS (3)
  - PARAESTHESIA [None]
  - BURNING SENSATION [None]
  - PAIN IN EXTREMITY [None]
